FAERS Safety Report 4615417-X (Version None)
Quarter: 2005Q1

REPORT INFORMATION
  Report Type: 
  Country: None (occurrence: None)
  Receive Date: 20050317
  Receipt Date: 20050304
  Transmission Date: 20050727
  Serious: Yes (Other)
  Sender: FDA-Public Use
  Company Number: 2005042343

PATIENT
  Sex: Female

DRUGS (3)
  1. NEURONTIN [Suspect]
     Indication: PSYCHOMOTOR HYPERACTIVITY
     Dosage: 200 MG (100 MG, 2 IN 1 D), ORAL
     Route: 048
     Dates: start: 20040101, end: 20041001
  2. ALPRAZOLAM [Concomitant]
  3. FLUOXETINE HCL [Concomitant]

REACTIONS (4)
  - DRUG INEFFECTIVE [None]
  - UTERINE CYST [None]
  - UTERINE LEIOMYOMA [None]
  - WEIGHT INCREASED [None]
